FAERS Safety Report 19266108 (Version 2)
Quarter: 2021Q2

REPORT INFORMATION
  Report Type: Spontaneous
  Country: US (occurrence: US)
  Receive Date: 20210517
  Receipt Date: 20210520
  Transmission Date: 20210717
  Serious: Yes (Hospitalization, Other)
  Sender: FDA-Public Use
  Company Number: US-TEVA-2021-US-1911763

PATIENT
  Age: 47 Year
  Sex: Female

DRUGS (3)
  1. PACLITAXEL. [Suspect]
     Active Substance: PACLITAXEL
     Dosage: DOSE WAS 150 MG AT 250 ML/HOUR
     Dates: start: 20210506
  2. PACLITAXEL. [Suspect]
     Active Substance: PACLITAXEL
     Indication: BREAST CANCER
     Dosage: STRENGTH: 300 MG / 50 ML
     Route: 065
     Dates: start: 20210429, end: 20210506
  3. BENADRYL [Suspect]
     Active Substance: DIPHENHYDRAMINE HYDROCHLORIDE
     Route: 065

REACTIONS (10)
  - Cardiac arrest [Unknown]
  - Flushing [Unknown]
  - Oxygen saturation decreased [Unknown]
  - Dyspnoea [Unknown]
  - Asthenia [Unknown]
  - Pulmonary embolism [Unknown]
  - Feeling hot [Unknown]
  - Restlessness [Unknown]
  - Hyperhidrosis [Unknown]
  - Unresponsive to stimuli [Unknown]

NARRATIVE: CASE EVENT DATE: 202105
